FAERS Safety Report 7013862-9 (Version None)
Quarter: 2010Q3

REPORT INFORMATION
  Report Type: 
  Country: None (occurrence: None)
  Receive Date: 20100924
  Receipt Date: 20100913
  Transmission Date: 20110219
  Serious: Yes (Other)
  Sender: FDA-Public Use
  Company Number: FI-WATSON-2010-12632

PATIENT
  Age: 10 Week

DRUGS (1)
  1. FLUOXETINE [Suspect]
     Indication: PRODUCT USED FOR UNKNOWN INDICATION
     Dosage: RECEIVED VIA MOTHER'S MILK
     Route: 063

REACTIONS (1)
  - ABDOMINAL PAIN [None]
